FAERS Safety Report 4284172-8 (Version None)
Quarter: 2004Q1

REPORT INFORMATION
  Report Type: 
  Country: None (occurrence: None)
  Receive Date: 20040130
  Receipt Date: 20040112
  Transmission Date: 20041129
  Serious: Yes (Hospitalization)
  Sender: FDA-Public Use
  Company Number: US_020887272

PATIENT
  Age: 75 Year
  Sex: Male
  Weight: 71 kg

DRUGS (23)
  1. GEMCITABINE HYDROCHLORIDE - IV (GEMCITABINE) [Suspect]
     Indication: LUNG NEOPLASM MALIGNANT
     Dosage: 2400 MG
     Dates: start: 20020827, end: 20021203
  2. ISIS 3521 (LY900003) [Suspect]
     Indication: LUNG NEOPLASM MALIGNANT
     Dosage: 175 MG/KG/DAY
     Dates: start: 20020807, end: 20021210
  3. CISPLATIN [Suspect]
     Indication: LUNG NEOPLASM MALIGNANT
     Dosage: 153.6 MG
     Dates: start: 20020807, end: 20021203
  4. OXYCONTIN [Concomitant]
  5. NOVOLIN NPH (INSULIN HUMAN INJECTION, ISOPHANE) [Concomitant]
  6. PREVACID [Concomitant]
  7. VALSARTAN [Concomitant]
  8. GUAIFENESIN [Concomitant]
  9. LATANOPROST [Concomitant]
  10. ATROVENT [Concomitant]
  11. COMPAZINE (PROHLOROPERAZINE EDISYLATE) [Concomitant]
  12. ZOFRAN [Concomitant]
  13. PHENEGRAN (PROMETHAZINE HYDROCHLORIDE) [Concomitant]
  14. MULTI-VITAMIN [Concomitant]
  15. SENOKOT [Concomitant]
  16. PERCOCET [Concomitant]
  17. ZOMETA [Concomitant]
  18. SEREVENT (SALAMETEROL XINAFOATE) [Concomitant]
  19. GLIPIZIDE [Concomitant]
  20. PRAZOSIN HCL [Concomitant]
  21. LACTULOSE [Concomitant]
  22. ALBUTEROL [Concomitant]
  23. COUMADIN [Concomitant]

REACTIONS (3)
  - ABDOMINAL PAIN [None]
  - HAEMOGLOBIN DECREASED [None]
  - PLATELET COUNT DECREASED [None]
